FAERS Safety Report 7621110-1 (Version None)
Quarter: 2011Q3

REPORT INFORMATION
  Report Type: 
  Country: None (occurrence: None)
  Receive Date: 20110719
  Receipt Date: 20110225
  Transmission Date: 20111222
  Serious: No
  Sender: FDA-Public Use
  Company Number: US-KINGPHARMUSA00001-K201100206

PATIENT
  Age: 54 Year
  Sex: Female
  Weight: 62.585 kg

DRUGS (3)
  1. LEVOXYL [Suspect]
     Indication: HYPOTHYROIDISM
     Dosage: 75 MCG, QD
     Route: 048
     Dates: start: 20110201, end: 20110225
  2. ORAL CONTRACEPTIVE NOS [Concomitant]
     Indication: MENOPAUSE
     Dosage: UNK
     Route: 048
  3. LEVOXYL [Suspect]
     Dosage: 50 MCG, QD
     Route: 048
     Dates: start: 20101101, end: 20110201

REACTIONS (6)
  - DRY SKIN [None]
  - ROSACEA [None]
  - ERYTHEMA [None]
  - PRURITUS [None]
  - BURNING SENSATION [None]
  - FLUSHING [None]
